FAERS Safety Report 19362101 (Version 1)
Quarter: 2021Q2

REPORT INFORMATION
  Report Type: Report from Study
  Country: US (occurrence: US)
  Receive Date: 20210601
  Receipt Date: 20210601
  Transmission Date: 20210717
  Serious: Yes (Death)
  Sender: FDA-Public Use
  Company Number: US-PFIZER INC-2021613179

PATIENT

DRUGS (12)
  1. ETOPOSIDE. [Suspect]
     Active Substance: ETOPOSIDE
     Dosage: 150 MG/M2, DAILY ON DAYS 1 TO 3
     Route: 042
  2. ETOPOSIDE. [Suspect]
     Active Substance: ETOPOSIDE
     Dosage: 150 MG/M2, DAILY ON DAYS 1 TO 5
     Route: 042
  3. VINCRISTINE SULFATE. [Suspect]
     Active Substance: VINCRISTINE SULFATE
     Dosage: 1.5 MG/M2, WEEKLY
     Route: 042
  4. IFOSFAMIDE. [Suspect]
     Active Substance: IFOSFAMIDE
     Dosage: 2 G/M2, DAILY CYCLIC
  5. CYCLOPHOSPHAMIDE. [Suspect]
     Active Substance: CYCLOPHOSPHAMIDE
     Dosage: SD OR HD, CYCLIC
  6. DOXORUBICIN HCL [Suspect]
     Active Substance: DOXORUBICIN HYDROCHLORIDE
     Dosage: 60 MG/M2, DAILY CONTINUOUS INFUSION OVER 24 HOURS
     Route: 042
  7. DACTINOMYCIN [Suspect]
     Active Substance: DACTINOMYCIN
     Dosage: 1.5 MG/M2, BIWEEKLY
     Route: 042
  8. G?CSF [Concomitant]
     Active Substance: GRANULOCYTE COLONY-STIMULATING FACTOR NOS
     Dosage: EVERY 21 DAYS OR ANC WAS AT LEAST 0.5X109/L AND THE PLATELET COUNT WAS AT LEAST 50X109/L
  9. DOXORUBICIN HCL [Suspect]
     Active Substance: DOXORUBICIN HYDROCHLORIDE
     Dosage: 45 MG/M2 ON DAY 5
     Route: 042
  10. CYCLOPHOSPHAMIDE. [Suspect]
     Active Substance: CYCLOPHOSPHAMIDE
     Dosage: 1.5 G/M2, CYCLIC
  11. MESNA. [Concomitant]
     Active Substance: MESNA
     Dosage: 25% OF THE OXAZAPHOSPHORINE DOSE
  12. G?CSF [Concomitant]
     Active Substance: GRANULOCYTE COLONY-STIMULATING FACTOR NOS
     Dosage: 10 UG/KG/DOSE FOR 10 TO 14 DAYS OR UNTIL THE ANC WAS 10.0 3 109/L OR GREATER

REACTIONS (1)
  - Death [Fatal]
